FAERS Safety Report 7079906-3 (Version None)
Quarter: 2010Q4

REPORT INFORMATION
  Report Type: 
  Country: None (occurrence: None)
  Receive Date: 20101102
  Receipt Date: 20101022
  Transmission Date: 20110411
  Serious: Yes (Hospitalization, Other)
  Sender: FDA-Public Use
  Company Number: JP-PFIZER INC-2010131285

PATIENT
  Age: 43 Year
  Sex: Male

DRUGS (5)
  1. CHAMPIX [Suspect]
     Indication: SMOKING CESSATION THERAPY
     Dosage: 1 MG, DAY
     Route: 048
     Dates: start: 20100805, end: 20101006
  2. MAINTATE [Concomitant]
     Indication: HYPERTENSION
     Dosage: 5 MG, DAY
     Route: 048
  3. AMLODIPINE [Concomitant]
     Indication: HYPERTENSION
     Dosage: 5 MG, DAY
     Route: 048
  4. LOSARTAN POTASSIUM AND HYDROCHLOROTHIAZIDE [Concomitant]
     Indication: HYPERTENSION
     Dosage: A TABLET, DAY
     Route: 048
  5. NICHOLASE [Concomitant]
     Indication: NASOPHARYNGITIS
     Dosage: UNK
     Route: 048
     Dates: start: 20101008

REACTIONS (4)
  - ALTERED STATE OF CONSCIOUSNESS [None]
  - DIABETIC HYPEROSMOLAR COMA [None]
  - NASOPHARYNGITIS [None]
  - NAUSEA [None]
